FAERS Safety Report 21787178 (Version 3)
Quarter: 2023Q1

REPORT INFORMATION
  Report Type: Spontaneous
  Country: US (occurrence: US)
  Receive Date: 20221228
  Receipt Date: 20230222
  Transmission Date: 20230418
  Serious: No
  Sender: FDA-Public Use
  Company Number: US-PFIZER INC-2020355257

PATIENT
  Age: 13 Year
  Sex: Female

DRUGS (1)
  1. GENOTROPIN [Suspect]
     Active Substance: SOMATROPIN
     Indication: Growth disorder
     Dosage: 1.5 MG, DAILY (ADMINISTERED DAILY TO TRICEPS, THIGH, GLUTEUS , LOWER ABDOMINAL ROTATING)

REACTIONS (3)
  - Device use issue [Unknown]
  - Device breakage [Unknown]
  - Product prescribing error [Unknown]
